FAERS Safety Report 5216263-9 (Version None)
Quarter: 2007Q1

REPORT INFORMATION
  Report Type: 
  Country: None (occurrence: None)
  Receive Date: 20070123
  Receipt Date: 20070112
  Transmission Date: 20070707
  Serious: Yes (Hospitalization)
  Sender: FDA-Public Use
  Company Number: CA-BOEHRINGER INGELHEIM PHARMACEUTICALS, INC.-2007-CN-00039CN

PATIENT
  Sex: Male

DRUGS (1)
  1. MICARDIS [Suspect]
     Dates: start: 20060726

REACTIONS (2)
  - BOWEL MOVEMENT IRREGULARITY [None]
  - CONSTIPATION [None]
